FAERS Safety Report 6602094-1 (Version None)
Quarter: 2010Q1

REPORT INFORMATION
  Report Type: 
  Country: None (occurrence: None)
  Receive Date: 20100225
  Receipt Date: 20100215
  Transmission Date: 20100710
  Serious: Yes (Hospitalization, Other)
  Sender: FDA-Public Use
  Company Number: PHHY2010FR02743

PATIENT
  Sex: Male

DRUGS (8)
  1. NEORAL [Suspect]
     Dosage: 100 MG, BID
     Route: 048
     Dates: start: 20090911, end: 20091016
  2. NEORAL [Suspect]
     Route: 048
  3. CELLCEPT [Suspect]
     Dosage: 500 MG, BID
     Route: 048
     Dates: start: 20081226, end: 20091016
  4. CELLCEPT [Suspect]
     Route: 048
  5. KAYEXALATE [Concomitant]
  6. AERIUS [Concomitant]
  7. ATARAX [Concomitant]
  8. RIVOTRIL [Concomitant]

REACTIONS (6)
  - APHTHOUS STOMATITIS [None]
  - DYSPHAGIA [None]
  - IMMUNOSUPPRESSANT DRUG LEVEL INCREASED [None]
  - MUCOCUTANEOUS ULCERATION [None]
  - PYREXIA [None]
  - WHITE BLOOD CELL COUNT DECREASED [None]
